FAERS Safety Report 7994698-9 (Version None)
Quarter: 2011Q4

REPORT INFORMATION
  Report Type: 
  Country: None (occurrence: None)
  Receive Date: 20111220
  Receipt Date: 20111205
  Transmission Date: 20120403
  Serious: Yes (Death)
  Sender: FDA-Public Use
  Company Number: PHHY2011US110119

PATIENT
  Age: 59 Year
  Sex: Male

DRUGS (5)
  1. COCAINE [Suspect]
  2. METHADONE HCL [Suspect]
  3. ACETAMINOPHEN [Suspect]
     Route: 048
  4. CLOZAPINE [Suspect]
     Route: 048
  5. OXYCODONE HCL [Suspect]

REACTIONS (1)
  - COMPLETED SUICIDE [None]
